FAERS Safety Report 24804622 (Version 2)
Quarter: 2025Q1

REPORT INFORMATION
  Report Type: Report from Study
  Country: US (occurrence: US)
  Receive Date: 20250103
  Receipt Date: 20250127
  Transmission Date: 20250409
  Serious: Yes (Hospitalization)
  Sender: ABBVIE
  Company Number: US-ABBVIE-6069161

PATIENT
  Age: 67 Year
  Sex: Male

DRUGS (1)
  1. VENCLEXTA [Suspect]
     Active Substance: VENETOCLAX
     Indication: Acute myeloid leukaemia
     Dosage: UNIT DOSE: 400 MILLIGRAM
     Route: 048
     Dates: start: 202204

REACTIONS (7)
  - Blast cell count increased [Recovered/Resolved]
  - Acute myeloid leukaemia [Unknown]
  - Incorrect dose administered [Unknown]
  - Haematospermia [Not Recovered/Not Resolved]
  - Feeling abnormal [Unknown]
  - Haematuria [Not Recovered/Not Resolved]
  - Discomfort [Unknown]

NARRATIVE: CASE EVENT DATE: 20250122
